FAERS Safety Report 17616921 (Version 1)
Quarter: 2020Q2

REPORT INFORMATION
  Report Type: Spontaneous
  Country: US (occurrence: US)
  Receive Date: 20200402
  Receipt Date: 20200402
  Transmission Date: 20200713
  Serious: Yes (Other)
  Sender: FDA-Public Use
  Company Number: None

PATIENT
  Age: 38 Year
  Sex: Male
  Weight: 128.25 kg

DRUGS (17)
  1. PANTOPRAZOLE [Concomitant]
     Active Substance: PANTOPRAZOLE
  2. FLUOXETINE [Concomitant]
     Active Substance: FLUOXETINE HYDROCHLORIDE
  3. ALBUTEROL. [Concomitant]
     Active Substance: ALBUTEROL
  4. BENADRYL [Concomitant]
     Active Substance: DIPHENHYDRAMINE HYDROCHLORIDE
  5. ATORVASTATIN [Concomitant]
     Active Substance: ATORVASTATIN
  6. EMTRICITABINE-TENOFOVIR DISOPROXIL FUMARATE [Concomitant]
  7. TRAZODONE [Concomitant]
     Active Substance: TRAZODONE HYDROCHLORIDE
  8. ALBUTEROL SULFATE HFA INHALATION AEROSOL [Suspect]
     Active Substance: ALBUTEROL SULFATE
     Indication: ASTHMA
     Dosage: ?          QUANTITY:2 PUFF(S);?
     Route: 055
     Dates: start: 20200122, end: 20200401
  9. DOXYCYCLINE MONOHYDRATE [Concomitant]
     Active Substance: DOXYCYCLINE
  10. TIZANIDINE. [Concomitant]
     Active Substance: TIZANIDINE
  11. IBUPROFEN. [Concomitant]
     Active Substance: IBUPROFEN
  12. CENTRUM MULTIVITAMIN FOR MEN [Concomitant]
  13. LOSARTAN. [Concomitant]
     Active Substance: LOSARTAN
  14. FLUTICASONE PROPION-SALMETEROL [Concomitant]
  15. VITAMIN E [Concomitant]
     Active Substance: .ALPHA.-TOCOPHEROL
  16. MELATONIN [Concomitant]
     Active Substance: MELATONIN
  17. TADALAFIL. [Concomitant]
     Active Substance: TADALAFIL

REACTIONS (6)
  - Dizziness [None]
  - Eyelid injury [None]
  - Syncope [None]
  - Fall [None]
  - Loss of consciousness [None]
  - Eye contusion [None]

NARRATIVE: CASE EVENT DATE: 20200401
